FAERS Safety Report 23251080 (Version 1)
Quarter: 2023Q4

REPORT INFORMATION
  Report Type: Report from Study
  Country: IL (occurrence: IL)
  Receive Date: 20231201
  Receipt Date: 20231201
  Transmission Date: 20240110
  Serious: Yes (Other)
  Sender: FDA-Public Use
  Company Number: IL-002147023-NVSC2023IL251765

PATIENT
  Age: 1 Year
  Sex: Male
  Weight: 2.5 kg

DRUGS (4)
  1. SANDOSTATIN LAR DEPOT [Suspect]
     Active Substance: OCTREOTIDE ACETATE
     Indication: Foetal exposure during pregnancy
     Dosage: (MATERNAL DOSE: 20 MG, Q4W (LAST INJECTION WAS ON 11 MAY 2022))
     Route: 064
  2. SANDOSTATIN LAR DEPOT [Suspect]
     Active Substance: OCTREOTIDE ACETATE
     Dosage: (MATERNAL DOSE: 20 MG, Q4W)
     Route: 064
  3. SANDOSTATIN LAR DEPOT [Suspect]
     Active Substance: OCTREOTIDE ACETATE
  4. MINIRIN [Concomitant]
     Active Substance: DESMOPRESSIN ACETATE
     Indication: Foetal exposure during pregnancy
     Dosage: (MATERNAL DOSE: 0.1MG (2-3/D))
     Route: 064

REACTIONS (2)
  - Intracranial pressure increased [Unknown]
  - Foetal exposure during pregnancy [Unknown]
